FAERS Safety Report 15647993 (Version 7)
Quarter: 2020Q1

REPORT INFORMATION
  Report Type: Spontaneous
  Country: JP (occurrence: JP)
  Receive Date: 20181122
  Receipt Date: 20200205
  Transmission Date: 20200409
  Serious: Yes (Hospitalization, Other)
  Sender: FDA-Public Use
  Company Number: JP-009507513-1810JPN002888J

PATIENT
  Age: 74 Year
  Sex: Male
  Weight: 63 kg

DRUGS (8)
  1. NAIXAN [Concomitant]
     Active Substance: NAPROXEN SODIUM
     Indication: TUMOUR ASSOCIATED FEVER
     Dosage: 100 MILLIGRAM, TID
     Route: 048
     Dates: start: 20180807
  2. TSUMURA DAIKENCHUTO EXTRACT GRANULES FOR ETHICAL USE [Concomitant]
     Active Substance: HERBALS
     Indication: CONSTIPATION
     Dosage: 2.5 GRAM, TID
     Route: 048
  3. KEYTRUDA [Suspect]
     Active Substance: PEMBROLIZUMAB
     Indication: NON-SMALL CELL LUNG CANCER
     Dosage: 200 MILLIGRAM, Q3W
     Route: 041
     Dates: start: 20180824, end: 20181026
  4. MAGNESIUM OXIDE. [Concomitant]
     Active Substance: MAGNESIUM OXIDE
     Indication: CONSTIPATION
     Dosage: 250 MILLIGRAM, BID
     Route: 048
  5. SUGLAT [Concomitant]
     Active Substance: IPRAGLIFLOZIN L-PROLINE
     Indication: DIABETES MELLITUS
     Dosage: 50 MILLIGRAM, QD
     Route: 048
     Dates: start: 20180908
  6. LOSARTAN K [Concomitant]
     Active Substance: LOSARTAN POTASSIUM
     Indication: HYPERTENSION
     Dosage: 2.5 MILLIGRAM
     Route: 048
  7. JANUVIA [Concomitant]
     Active Substance: SITAGLIPTIN PHOSPHATE
     Indication: DIABETES MELLITUS
     Dosage: 50 MILLIGRAM, QD
     Route: 048
     Dates: start: 20180908
  8. MOSAPRIDE CITRATE HYDRATE [Concomitant]
     Active Substance: MOSAPRIDE CITRATE DIHYDRATE
     Indication: GASTRITIS
     Dosage: 5 MILLIGRAM, TID
     Route: 048

REACTIONS (3)
  - Lymphoproliferative disorder [Recovered/Resolved]
  - Malignant neoplasm progression [Unknown]
  - Interstitial lung disease [Recovered/Resolved]

NARRATIVE: CASE EVENT DATE: 20181031
